FAERS Safety Report 5612879-6 (Version None)
Quarter: 2008Q1

REPORT INFORMATION
  Report Type: 
  Country: None (occurrence: None)
  Receive Date: 20080204
  Receipt Date: 20080129
  Transmission Date: 20080703
  Serious: Yes (Other)
  Sender: FDA-Public Use
  Company Number: JP-BOEHRINGER INGELHEIM GMBH, GERMANY-2008-DE-00574GD

PATIENT
  Age: 80 Year
  Sex: Female

DRUGS (3)
  1. MORPHINE [Suspect]
     Indication: CANCER PAIN
  2. HALOPERIDOL [Suspect]
     Indication: PSYCHOMOTOR HYPERACTIVITY
     Route: 042
  3. HALOPERIDOL [Suspect]
     Indication: DELIRIUM

REACTIONS (4)
  - DELIRIUM [None]
  - PSYCHOMOTOR HYPERACTIVITY [None]
  - RESPIRATORY FAILURE [None]
  - SEDATION [None]
